FAERS Safety Report 7884282 (Version 3)
Quarter: 2012Q4

REPORT INFORMATION
  Report Type: 
  Country: US (occurrence: US)
  Receive Date: 20110404
  Receipt Date: 20121010
  Transmission Date: 20130627
  Serious: Yes (Hospitalization, Disabling, Other)
  Sender: FDA-Public Use
  Company Number: US-ASTRAZENECA-2011SE17685

PATIENT
  Age: 67 Year
  Sex: Female

DRUGS (2)
  1. RHINOCORT AQUA [Suspect]
     Route: 045
  2. NEXIUM [Suspect]
     Route: 048

REACTIONS (4)
  - Wheelchair user [Unknown]
  - Fall [Unknown]
  - Ankle fracture [Unknown]
  - Sinusitis [Unknown]
